FAERS Safety Report 8660882 (Version 4)
Quarter: 2014Q1

REPORT INFORMATION
  Report Type: Spontaneous
  Country: US (occurrence: US)
  Receive Date: 20120711
  Receipt Date: 20140303
  Transmission Date: 20141002
  Serious: Yes (Congenital Anomaly, Other)
  Sender: FDA-Public Use
  Company Number: US-PFIZER INC-2012164607

PATIENT
  Sex: Female

DRUGS (22)
  1. ZOLOFT [Suspect]
     Indication: DEPRESSION
     Dosage: 50 MG, 1X/DAY
     Route: 064
     Dates: start: 20040810, end: 200410
  2. ZOLOFT [Suspect]
     Indication: DEPRESSION
     Dosage: UNK
     Route: 064
     Dates: end: 2010
  3. TENORETIC [Concomitant]
     Dosage: UNK (50 MG ONE DAILY THEN DECREASE TO HALF DAILY)
     Route: 064
     Dates: start: 20040410
  4. DEMEROL [Concomitant]
     Indication: PAIN
     Dosage: 50 MG, UNK
     Route: 064
     Dates: start: 20040410
  5. PRENATAL VITAMINS [Concomitant]
     Dosage: UNK. 1X/DAY
     Route: 064
  6. TYLENOL [Concomitant]
     Indication: ARTHRALGIA
     Dosage: UNK
     Route: 064
     Dates: start: 20040119
  7. MILK OF MAGNESIA [Concomitant]
     Dosage: UNK
     Route: 064
     Dates: start: 20040410
  8. PHENERGAN [Concomitant]
     Indication: NAUSEA
     Dosage: 25 MG, UNK
     Route: 064
     Dates: start: 20040119
  9. BENADRYL [Concomitant]
     Indication: HYPERSENSITIVITY
     Dosage: UNK
     Route: 064
  10. MEPERIDINE [Concomitant]
     Indication: BLOOD PRESSURE
     Dosage: 50 MG, UNK
     Route: 064
     Dates: start: 20040410
  11. ATENOLOL/CHLORTHAL [Concomitant]
     Dosage: UNK
     Route: 064
     Dates: start: 20040410
  12. HYDROCODONE W/ACETAMINOPHEN [Concomitant]
     Indication: TOOTHACHE
     Dosage: UNK
     Route: 064
     Dates: start: 20040610
  13. PENICILLIN VK [Concomitant]
     Indication: DENTAL CARE
     Dosage: UNK (500 M)
     Route: 064
     Dates: start: 20040610
  14. PAMINE [Concomitant]
     Dosage: UNK
     Route: 064
  15. Z-PAK [Concomitant]
     Indication: PHARYNGITIS
     Dosage: UNK
     Route: 064
     Dates: start: 20001108
  16. Z-PAK [Concomitant]
     Indication: BRONCHITIS
  17. KENALOG [Concomitant]
     Indication: BRONCHITIS
     Dosage: UNK (2CC)
     Route: 064
     Dates: start: 20020123
  18. PANCOF XP [Concomitant]
     Indication: BRONCHITIS
     Dosage: UNK
     Route: 064
     Dates: start: 20010216
  19. TUSSEND [Concomitant]
     Dosage: UNK
     Route: 064
  20. CECLOR [Concomitant]
     Indication: BRONCHITIS
     Dosage: UNK (500)
     Route: 064
     Dates: start: 20021016
  21. LEXAPRO [Concomitant]
     Dosage: UNK
     Route: 064
  22. ADVIL [Concomitant]
     Dosage: UNK
     Route: 064

REACTIONS (13)
  - Foetal exposure during pregnancy [Unknown]
  - Coarctation of the aorta [Recovering/Resolving]
  - Fallot^s tetralogy [Unknown]
  - Shone complex [Unknown]
  - Patent ductus arteriosus [Unknown]
  - Pyloric stenosis [Unknown]
  - Aorta hypoplasia [Unknown]
  - Atrial septal defect [Unknown]
  - Cardiac failure [Unknown]
  - Vocal cord paralysis [Unknown]
  - Organ failure [Unknown]
  - Gastrooesophageal reflux disease [Unknown]
  - Developmental delay [Unknown]
